FAERS Safety Report 8944888 (Version 1)
Quarter: 2012Q4

REPORT INFORMATION
  Report Type: 
  Country: BR (occurrence: BR)
  Receive Date: 20121204
  Receipt Date: 20121204
  Transmission Date: 20130627
  Serious: No
  Sender: FDA-Public Use
  Company Number: BR-009507513-1211BRA010149

PATIENT
  Age: 39 Year
  Sex: Male

DRUGS (2)
  1. SAPHRIS [Suspect]
     Indication: SLEEP DISORDER
     Dosage: UNK, qd
     Route: 060
     Dates: start: 20121109, end: 20121112
  2. HALDOL [Concomitant]
     Indication: MENTAL DISORDER
     Dosage: UNK
     Dates: start: 2010

REACTIONS (3)
  - Dyspnoea [Recovered/Resolved]
  - Chest discomfort [Recovered/Resolved]
  - Off label use [Unknown]
